FAERS Safety Report 7421577-8 (Version None)
Quarter: 2011Q2

REPORT INFORMATION
  Report Type: 
  Country: None (occurrence: None)
  Receive Date: 20110418
  Receipt Date: 20110408
  Transmission Date: 20111010
  Serious: Yes (Hospitalization)
  Sender: FDA-Public Use
  Company Number: IE-AMGEN-IRLSP2011018963

PATIENT
  Age: 68 Year
  Sex: Female

DRUGS (8)
  1. ARANESP [Suspect]
     Indication: RENAL FAILURE CHRONIC
  2. LANSOPRAZOLE [Concomitant]
  3. CYCLOSPORINE [Concomitant]
  4. PREDNISONE [Concomitant]
  5. IDEOS                              /00108001/ [Concomitant]
  6. ALLOPURINOL [Concomitant]
  7. CELLCEPT [Concomitant]
  8. CARDURA [Concomitant]

REACTIONS (3)
  - NEPHRECTOMY [None]
  - INTESTINAL RESECTION [None]
  - SPLENECTOMY [None]
